FAERS Safety Report 21908283 (Version 1)
Quarter: 2023Q1

REPORT INFORMATION
  Report Type: Report from Study
  Country: US (occurrence: US)
  Receive Date: 20230125
  Receipt Date: 20230125
  Transmission Date: 20230418
  Serious: Yes (Hospitalization)
  Sender: FDA-Public Use
  Company Number: US-EXELIXIS-CABO-22058588

PATIENT
  Age: 78 Year
  Sex: Male
  Weight: 65.76 kg

DRUGS (11)
  1. CABOMETYX [Suspect]
     Active Substance: CABOZANTINIB S-MALATE
     Indication: Renal cell carcinoma
     Dosage: 60 MG, QD
     Route: 048
     Dates: start: 202202
  2. OXYCODONE HYDROCHLORIDE [Concomitant]
     Active Substance: OXYCODONE HYDROCHLORIDE
  3. DIAZEPAM [Concomitant]
     Active Substance: DIAZEPAM
  4. SIMVASTATIN [Concomitant]
     Active Substance: SIMVASTATIN
  5. LOSARTAN POTASSIUM [Concomitant]
     Active Substance: LOSARTAN POTASSIUM
  6. METOPROLOL SUCCINATE [Concomitant]
     Active Substance: METOPROLOL SUCCINATE
  7. POTASSIUM CHLORIDE [Concomitant]
     Active Substance: POTASSIUM CHLORIDE
  8. INSULIN NOS [Concomitant]
     Active Substance: INSULIN NOS
  9. ELIQUIS [Concomitant]
     Active Substance: APIXABAN
  10. RYBELSUS [Concomitant]
     Active Substance: SEMAGLUTIDE
  11. BETAMETHASONE DIPROPIONATE AUGMENTED [Concomitant]
     Active Substance: BETAMETHASONE DIPROPIONATE

REACTIONS (12)
  - Loss of consciousness [Unknown]
  - Road traffic accident [Unknown]
  - Speech disorder [Unknown]
  - Blood glucose decreased [Unknown]
  - Confusional state [Unknown]
  - Diarrhoea [Unknown]
  - Decreased appetite [Unknown]
  - Dysgeusia [Unknown]
  - Thrombosis [Unknown]
  - Stomatitis [Unknown]
  - Fatigue [Unknown]
  - Dyspnoea [Unknown]

NARRATIVE: CASE EVENT DATE: 20220401
